FAERS Safety Report 6020083-5 (Version None)
Quarter: 2008Q4

REPORT INFORMATION
  Report Type: 
  Country: None (occurrence: None)
  Receive Date: 20081226
  Receipt Date: 20081217
  Transmission Date: 20090506
  Serious: Yes (Other)
  Sender: FDA-Public Use
  Company Number: CA-BAYER-200841120NA

PATIENT
  Age: 50 Year
  Sex: Female

DRUGS (1)
  1. AVELOX [Suspect]
     Indication: DRUG USE FOR UNKNOWN INDICATION
     Dosage: TOTAL DAILY DOSE: 1600 MG  UNIT DOSE: 400 MG
     Dates: start: 20081204, end: 20081210

REACTIONS (9)
  - CONFUSIONAL STATE [None]
  - HALLUCINATION [None]
  - HEADACHE [None]
  - MUSCULAR WEAKNESS [None]
  - NASAL DRYNESS [None]
  - ORAL DISCOMFORT [None]
  - PALPITATIONS [None]
  - VISUAL ACUITY REDUCED [None]
  - VOMITING [None]
